FAERS Safety Report 7971433-1 (Version None)
Quarter: 2011Q4

REPORT INFORMATION
  Report Type: 
  Country: None (occurrence: None)
  Receive Date: 20111209
  Receipt Date: 20111209
  Transmission Date: 20120403
  Serious: Yes (Hospitalization)
  Sender: FDA-Public Use
  Company Number: None

PATIENT
  Sex: Female
  Weight: 49.1 kg

DRUGS (3)
  1. ERBITUX [Suspect]
     Dosage: 365 MG
  2. FLUOROURACIL [Suspect]
     Dosage: 4380 MG
  3. CISPLATIN [Suspect]
     Dosage: 110 MG

REACTIONS (5)
  - STAPHYLOCOCCAL INFECTION [None]
  - ASTHENIA [None]
  - DEHYDRATION [None]
  - FATIGUE [None]
  - DIARRHOEA [None]
